FAERS Safety Report 6397211-5 (Version None)
Quarter: 2009Q4

REPORT INFORMATION
  Report Type: 
  Country: None (occurrence: None)
  Receive Date: 20091012
  Receipt Date: 20090930
  Transmission Date: 20100525
  Serious: Yes (Other)
  Sender: FDA-Public Use
  Company Number: JP-PFIZER INC-2009277350

PATIENT
  Age: 41 Year

DRUGS (6)
  1. PEGVISOMANT [Suspect]
     Indication: ACROMEGALY
     Dosage: 40 MG, 1X/DAY
     Route: 058
     Dates: start: 20071110, end: 20071110
  2. PEGVISOMANT [Suspect]
     Dosage: 10 MG, 1X/DAY
     Dates: start: 20071111
  3. SANDOSTATIN [Concomitant]
     Dosage: 30 MG, EVERY 4 WEEKS
     Route: 030
  4. CABASER [Concomitant]
     Dosage: UNK
     Route: 048
  5. THYRADIN [Concomitant]
     Dosage: UNK
     Route: 048
  6. LEVOTHYROXINE [Concomitant]
     Dosage: UNK
     Route: 048
     Dates: start: 20080614

REACTIONS (1)
  - HYPERCHOLESTEROLAEMIA [None]
